FAERS Safety Report 15420270 (Version 1)
Quarter: 2018Q3

REPORT INFORMATION
  Report Type: Report from Study
  Country: US (occurrence: US)
  Receive Date: 20180924
  Receipt Date: 20180924
  Transmission Date: 20181010
  Serious: Yes (Other)
  Sender: FDA-Public Use
  Company Number: US-MALLINCKRODT-T201803362

PATIENT
  Age: 62 Year
  Sex: Male

DRUGS (2)
  1. REPOSITORY CORTICOTROPIN INJECTION [Suspect]
     Active Substance: CORTICOTROPIN
     Indication: FOCAL SEGMENTAL GLOMERULOSCLEROSIS
     Dosage: 40 UNITS/0.5ML, 2 TIMES PER WEEK (WEDNESDAY/SUNDAY)
     Route: 058
     Dates: start: 20180805
  2. REPOSITORY CORTICOTROPIN INJECTION [Suspect]
     Active Substance: CORTICOTROPIN
     Indication: NEPHROTIC SYNDROME
     Dosage: 80 UNITS/1ML, 2 TIMES PER WEEK (WEDNESDAY/SUNDAY)
     Route: 058
     Dates: start: 20180801, end: 2018

REACTIONS (17)
  - Tremor [Not Recovered/Not Resolved]
  - Immunodeficiency [Not Recovered/Not Resolved]
  - Dizziness [Recovering/Resolving]
  - Proteinuria [Not Recovered/Not Resolved]
  - Blood glucose fluctuation [Not Recovered/Not Resolved]
  - Nocturia [Recovering/Resolving]
  - Hunger [Not Recovered/Not Resolved]
  - Mood altered [Recovering/Resolving]
  - Oedema peripheral [Recovering/Resolving]
  - White blood cell count increased [Not Recovered/Not Resolved]
  - Insomnia [Not Recovered/Not Resolved]
  - Dysgeusia [Recovering/Resolving]
  - Nausea [Recovering/Resolving]
  - Injection site bruising [Not Recovered/Not Resolved]
  - Agitation [Recovering/Resolving]
  - Blood creatinine increased [Not Recovered/Not Resolved]
  - Blood pressure increased [Not Recovered/Not Resolved]

NARRATIVE: CASE EVENT DATE: 2018
